FAERS Safety Report 7657065-3 (Version None)
Quarter: 2011Q3

REPORT INFORMATION
  Report Type: 
  Country: None (occurrence: None)
  Receive Date: 20110804
  Receipt Date: 20100610
  Transmission Date: 20111222
  Serious: No
  Sender: FDA-Public Use
  Company Number: US-GLAXOSMITHKLINE-A0864306A

PATIENT
  Age: 76 Year
  Sex: Male

DRUGS (6)
  1. VENTOLIN HFA [Concomitant]
  2. ADVAIR DISKUS 100/50 [Suspect]
     Route: 055
  3. ADVAIR DISKUS 100/50 [Suspect]
     Indication: EMPHYSEMA
     Dosage: 1PUFF TWICE PER DAY
     Route: 055
     Dates: start: 20100602, end: 20100610
  4. LIPITOR [Concomitant]
  5. ATENOLOL [Concomitant]
  6. PREDNISONE [Concomitant]

REACTIONS (2)
  - JOINT SWELLING [None]
  - OEDEMA PERIPHERAL [None]
